FAERS Safety Report 17775115 (Version 1)
Quarter: 2020Q2

REPORT INFORMATION
  Report Type: Spontaneous
  Country: US (occurrence: US)
  Receive Date: 20200512
  Receipt Date: 20200512
  Transmission Date: 20200714
  Serious: Yes (Life-Threatening)
  Sender: FDA-Public Use
  Company Number: None

PATIENT
  Age: 60 Year
  Sex: Female
  Weight: 105 kg

DRUGS (1)
  1. PRADAXA [Suspect]
     Active Substance: DABIGATRAN ETEXILATE MESYLATE
     Indication: DEEP VEIN THROMBOSIS
     Route: 048

REACTIONS (9)
  - Haemorrhoidal haemorrhage [None]
  - Asthenia [None]
  - Rectal haemorrhage [None]
  - Blood pressure systolic decreased [None]
  - Mobility decreased [None]
  - Lethargy [None]
  - Faeces discoloured [None]
  - Hypothermia [None]
  - Gastrointestinal angiectasia [None]

NARRATIVE: CASE EVENT DATE: 20200506
